FAERS Safety Report 7981102-X (Version None)
Quarter: 2011Q4

REPORT INFORMATION
  Report Type: 
  Country: None (occurrence: None)
  Receive Date: 20111212
  Receipt Date: 20111129
  Transmission Date: 20120403
  Serious: Yes (Death, Hospitalization, Disabling, Other)
  Sender: FDA-Public Use
  Company Number: 2011MA016967

PATIENT
  Age: 54 Year
  Weight: 68.9467 kg

DRUGS (16)
  1. DYAZIDE [Concomitant]
  2. WARFARIN SODIUM [Concomitant]
  3. LASIX [Concomitant]
  4. BIDIL [Concomitant]
  5. TENORMIN [Concomitant]
  6. PHOSLO [Concomitant]
  7. EPOGEN [Concomitant]
  8. NORVASC [Concomitant]
  9. IV FLUIDS [Concomitant]
  10. ANTIBIOTICS [Concomitant]
  11. ANTI-FUNGAL [Concomitant]
  12. DIGOXIN [Suspect]
     Dosage: 0.125 MG;PO
     Route: 048
     Dates: start: 20060301, end: 20080126
  13. CHEMOTHERAPY [Concomitant]
  14. MAGNESIUM OXIDE [Concomitant]
  15. PREVACID [Concomitant]
  16. COREG [Concomitant]

REACTIONS (26)
  - BREAST CANCER METASTATIC [None]
  - HEADACHE [None]
  - DIALYSIS [None]
  - HAEMATOCRIT DECREASED [None]
  - MUSCULOSKELETAL PAIN [None]
  - TREATMENT NONCOMPLIANCE [None]
  - AXILLARY MASS [None]
  - RENAL FAILURE ACUTE [None]
  - PAIN [None]
  - CHEST DISCOMFORT [None]
  - ACUTE RESPIRATORY FAILURE [None]
  - LEFT ATRIAL DILATATION [None]
  - HYPERTENSION [None]
  - NAUSEA [None]
  - LIVER DISORDER [None]
  - BREAST MASS [None]
  - HAEMOGLOBIN DECREASED [None]
  - EMOTIONAL DISTRESS [None]
  - ECONOMIC PROBLEM [None]
  - TOXICITY TO VARIOUS AGENTS [None]
  - GASTROOESOPHAGEAL REFLUX DISEASE [None]
  - ANXIETY [None]
  - ELECTROLYTE IMBALANCE [None]
  - VOMITING [None]
  - HYPOXIA [None]
  - MENTAL STATUS CHANGES [None]
